FAERS Safety Report 20076487 (Version 1)
Quarter: 2021Q4

REPORT INFORMATION
  Report Type: Spontaneous
  Country: SI (occurrence: SI)
  Receive Date: 20211116
  Receipt Date: 20211116
  Transmission Date: 20220303
  Serious: Yes (Hospitalization)
  Sender: FDA-Public Use
  Company Number: None

PATIENT
  Age: 64 Year
  Sex: Female

DRUGS (3)
  1. FOSAVANCE [Suspect]
     Active Substance: ALENDRONATE SODIUM\CHOLECALCIFEROL
     Indication: Osteoporosis
     Dosage: 1X IN ONE WEEK, AN EMPTY STOMACH WITH PLENTY OF WATER, STRENGTH: 70MG/5600 IU
     Route: 048
     Dates: start: 20211007, end: 20211007
  2. ATORVASTATIN CALCIUM [Concomitant]
     Active Substance: ATORVASTATIN CALCIUM
     Dosage: IN THE EVENING
     Route: 048
  3. PANTOPRAZOLE SODIUM [Concomitant]
     Active Substance: PANTOPRAZOLE SODIUM
     Dosage: 20 MILLIGRAM
     Route: 048

REACTIONS (3)
  - Fall [Unknown]
  - Vertigo [Unknown]
  - Jaw fracture [Unknown]

NARRATIVE: CASE EVENT DATE: 20211007
